FAERS Safety Report 9510987 (Version 1)
Quarter: 2013Q1

REPORT INFORMATION
  Report Type: Spontaneous
  Country: US (occurrence: None)
  Receive Date: 20130305
  Receipt Date: 20130305
  Transmission Date: 20140127
  Serious: Yes (Other)
  Sender: FDA-Public Use
  Company Number: 163-21880-12021300

PATIENT
  Age: 81 Year
  Sex: Male
  Weight: 95.26 kg

DRUGS (4)
  1. REVLIMID (LENALIDOMIDE) (CAPSULES) [Suspect]
     Indication: MYELODYSPLASTIC SYNDROME
     Route: 048
     Dates: start: 20120106, end: 20120127
  2. EXJADE [Concomitant]
  3. DOXAZOSIN [Concomitant]
  4. AMLODIPINE [Concomitant]

REACTIONS (1)
  - Neutropenia [None]
